FAERS Safety Report 16389144 (Version 1)
Quarter: 2019Q2

REPORT INFORMATION
  Report Type: Report from Study
  Country: US (occurrence: US)
  Receive Date: 20190604
  Receipt Date: 20190604
  Transmission Date: 20190711
  Serious: Yes (Hospitalization, Other)
  Sender: FDA-Public Use
  Company Number: US-OTSUKA-2019_021669

PATIENT
  Age: 61 Year
  Sex: Male

DRUGS (1)
  1. ARIPIPRAZOLE. [Suspect]
     Active Substance: ARIPIPRAZOLE
     Indication: BORDERLINE PERSONALITY DISORDER
     Dosage: 400 MG, QM
     Route: 065

REACTIONS (7)
  - Sepsis [Recovered/Resolved]
  - Seizure [Recovered/Resolved]
  - Product use in unapproved indication [Unknown]
  - Thrombosis [Recovered/Resolved]
  - Pneumonia [Recovered/Resolved]
  - Therapeutic response unexpected [Unknown]
  - Product dose omission [Unknown]

NARRATIVE: CASE EVENT DATE: 20190511
